FAERS Safety Report 8530301-7 (Version None)
Quarter: 2012Q3

REPORT INFORMATION
  Report Type: 
  Country: None (occurrence: None)
  Receive Date: 20120723
  Receipt Date: 20120711
  Transmission Date: 20120928
  Serious: Yes (Hospitalization, Other)
  Sender: FDA-Public Use
  Company Number: US-BAYER-2012-058175

PATIENT
  Age: 20 Year
  Sex: Female
  Weight: 61.224 kg

DRUGS (6)
  1. HYDROCODONE BITARTRATE AND ACETAMINOPHEN [Concomitant]
     Dosage: 5 MG / 500 MG UNK
     Route: 048
     Dates: start: 20090826
  2. NAPROXEN [Concomitant]
     Dosage: UNK
     Route: 048
     Dates: start: 20090801, end: 20100701
  3. CLOTRIMAZOLE W/BETAMETHASONE DIPROPIONAT [Concomitant]
     Dosage: 15 G, UNK
     Route: 061
     Dates: start: 20101001
  4. YAZ [Suspect]
     Indication: ENDOMETRIOSIS
     Dosage: UNK
     Dates: start: 20090715, end: 20091110
  5. CLINDAMYCIN [Concomitant]
     Dosage: 1 %, UNK
     Route: 061
     Dates: start: 20101001
  6. DIAZEPAM [Concomitant]
     Dosage: 5 MG, UNK
     Route: 048
     Dates: start: 20090826

REACTIONS (13)
  - INTRACRANIAL PRESSURE INCREASED [None]
  - EMOTIONAL DISTRESS [None]
  - ACTIVITIES OF DAILY LIVING IMPAIRED [None]
  - ATELECTASIS [None]
  - INJURY [None]
  - PAIN [None]
  - PULMONARY EMBOLISM [None]
  - BENIGN INTRACRANIAL HYPERTENSION [None]
  - MENTAL DISORDER [None]
  - GENERAL PHYSICAL HEALTH DETERIORATION [None]
  - ANXIETY [None]
  - STRESS [None]
  - INTRAOCULAR PRESSURE INCREASED [None]
